FAERS Safety Report 24616215 (Version 3)
Quarter: 2024Q4

REPORT INFORMATION
  Report Type: Spontaneous
  Country: US (occurrence: US)
  Receive Date: 20241113
  Receipt Date: 20241124
  Transmission Date: 20250115
  Serious: No
  Sender: AMGEN
  Company Number: US-AMGEN-USASP2024220285

PATIENT
  Age: 77 Year
  Sex: Female
  Weight: 56.4 kg

DRUGS (2)
  1. NEULASTA [Suspect]
     Active Substance: PEGFILGRASTIM
     Indication: Prophylaxis
     Dosage: UNK
     Route: 065
  2. NEULASTA [Suspect]
     Active Substance: PEGFILGRASTIM
     Dosage: UNK
     Route: 065

REACTIONS (1)
  - Device issue [Unknown]

NARRATIVE: CASE EVENT DATE: 20241018
